FAERS Safety Report 12874276 (Version 1)
Quarter: 2016Q4

REPORT INFORMATION
  Report Type: Report from Study
  Country: None (occurrence: BE)
  Receive Date: 20161021
  Receipt Date: 20161021
  Transmission Date: 20170207
  Serious: Yes (Death, Hospitalization)
  Sender: FDA-Public Use
  Company Number: BE-ABBVIE-16P-013-1756119-00

PATIENT
  Sex: Female

DRUGS (6)
  1. DUODOPA [Suspect]
     Active Substance: CARBIDOPA\LEVODOPA
     Dosage: DOSES CONTINUOUSLY MONITORED AND ADAPTED
     Route: 050
     Dates: start: 20111102, end: 20151027
  2. DUODOPA [Suspect]
     Active Substance: CARBIDOPA\LEVODOPA
     Indication: PARKINSON^S DISEASE
     Dosage: AM= 5 ML; CD= 2.4 ML/H DURING 16 HRS; ED= 2.5 ML
     Route: 050
     Dates: start: 20110110, end: 20111102
  3. BISOPROLOL, HYDROCHLOOR THIAZIDE (EMCORETIC MITIS) [Concomitant]
     Indication: PRODUCT USED FOR UNKNOWN INDICATION
     Dosage: BISOPROLOL 5 MG, HYDROCHLOORTHIAZIDE 12.5 MG??UNIT DOSE= 0.5 DOSAGE FORM
  4. LORAZEPAM (DORMONOCT) [Concomitant]
     Indication: PRODUCT USED FOR UNKNOWN INDICATION
  5. L-THYROXINE [Concomitant]
     Active Substance: LEVOTHYROXINE
     Indication: PRODUCT USED FOR UNKNOWN INDICATION
  6. DUODOPA [Suspect]
     Active Substance: CARBIDOPA\LEVODOPA
     Dosage: AM=1.2 ML; CD= 3.4 ML/H DURING 16 HRS; ND= 2.3 ML/H DURING 8 HRS; ED= 2.5 ML
     Route: 050
     Dates: start: 20151027

REACTIONS (2)
  - Myocardial infarction [Fatal]
  - Pneumonia aspiration [Unknown]
